FAERS Safety Report 7501999-7 (Version None)
Quarter: 2011Q2

REPORT INFORMATION
  Report Type: 
  Country: None (occurrence: None)
  Receive Date: 20110517
  Receipt Date: 20110503
  Transmission Date: 20111010
  Serious: Yes (Hospitalization)
  Sender: FDA-Public Use
  Company Number: CIP11001150

PATIENT
  Age: 1 Day
  Sex: Female
  Weight: 3.3 kg

DRUGS (7)
  1. CALCIMAGON-D3 (CALCIUM CARBONATE, COLECALCIFEROL) [Concomitant]
  2. NEXIUM [Suspect]
     Indication: DRUG EXPOSURE DURING PREGNANCY
     Dosage: 20 MG DAILY, TRANSPLACENTAL
     Route: 064
  3. ACTONEL [Suspect]
     Indication: DRUG EXPOSURE DURING PREGNANCY
     Dosage: 35 MG ONCE WEEKLY, TRANSPLACENTAL
     Route: 064
  4. PREDNISONE [Suspect]
     Indication: DRUG EXPOSURE DURING PREGNANCY
     Dosage: 1 MG DAILY, TRANSPLACENTAL
     Route: 064
  5. AZATHIOPRINE [Suspect]
     Dosage: 50 MG 3 TIMES DAILY, TRANSPLACENTAL
     Route: 064
  6. MESTINON [Suspect]
     Indication: MYASTHENIA GRAVIS
     Dosage: 60 MG FOUR TIMES A DAY, TRANSPLACENTAL
     Route: 064
  7. RISPERIDONE [Suspect]
     Indication: PSYCHOTIC DISORDER
     Dosage: 1 MG TWICE DAILY, TRANSPLACENTAL
     Route: 064

REACTIONS (8)
  - FEEDING DISORDER NEONATAL [None]
  - MUSCULAR WEAKNESS [None]
  - POOR SUCKING REFLEX [None]
  - BLOOD PH DECREASED [None]
  - NEONATAL ASPIRATION [None]
  - HYPOTONIA NEONATAL [None]
  - NEONATAL DISORDER [None]
  - MATERNAL DRUGS AFFECTING FOETUS [None]
